FAERS Safety Report 9380833 (Version 1)
Quarter: 2013Q3

REPORT INFORMATION
  Report Type: Spontaneous
  Country: GB (occurrence: GB)
  Receive Date: 20130702
  Receipt Date: 20130702
  Transmission Date: 20140515
  Serious: Yes (Death, Hospitalization)
  Sender: FDA-Public Use
  Company Number: GB-SANOFI-AVENTIS-2013SA064507

PATIENT
  Age: 62 Year
  Sex: Male
  Weight: 62.59 kg

DRUGS (7)
  1. CLOPIDOGREL BISULFATE [Suspect]
     Indication: PRODUCT USED FOR UNKNOWN INDICATION
     Route: 065
  2. IRBESARTAN [Concomitant]
     Dosage: 150 NOS
  3. BISOPROLOL [Concomitant]
     Dosage: 3.75 NOS
  4. TAMSULOSIN [Concomitant]
     Dosage: 400 NOS
  5. ATORVASTATIN [Concomitant]
     Dosage: 80 NOS
  6. OMACOR [Concomitant]
     Dosage: 1000 NOS
  7. ASPIRIN [Concomitant]
     Dosage: 75 MG

REACTIONS (10)
  - Leukaemia [Fatal]
  - Abdominal pain upper [Fatal]
  - Diarrhoea [Fatal]
  - Nausea [Fatal]
  - Weight decreased [Fatal]
  - Platelet count decreased [Fatal]
  - Bone marrow myelogram abnormal [Fatal]
  - Contusion [Not Recovered/Not Resolved]
  - Pneumonia [Not Recovered/Not Resolved]
  - Rash [Not Recovered/Not Resolved]
